FAERS Safety Report 7670176-1 (Version None)
Quarter: 2011Q3

REPORT INFORMATION
  Report Type: 
  Country: None (occurrence: None)
  Receive Date: 20110808
  Receipt Date: 20110727
  Transmission Date: 20111222
  Serious: Yes (Life-Threatening)
  Sender: FDA-Public Use
  Company Number: DE-GENENTECH-322523

PATIENT
  Sex: Male
  Weight: 68 kg

DRUGS (4)
  1. CYCLOPHOSPHAMIDE [Concomitant]
     Indication: B-CELL LYMPHOMA
     Dosage: 750 MG/M2, UNK
     Route: 042
     Dates: start: 20110301
  2. RITUXIMAB [Suspect]
     Indication: B-CELL LYMPHOMA
     Dosage: 375 MG/M2, UNK
     Route: 042
     Dates: start: 20110301
  3. VINCRISTINE [Concomitant]
     Indication: B-CELL LYMPHOMA
     Dosage: 1.4 MG/M2, UNK
     Route: 042
     Dates: start: 20110301
  4. DOXORUBICIN HCL [Concomitant]
     Indication: B-CELL LYMPHOMA
     Dosage: 50 MG/M2, UNK
     Route: 042
     Dates: start: 20110301

REACTIONS (1)
  - ALVEOLITIS [None]
